FAERS Safety Report 20692547 (Version 1)
Quarter: 2022Q2

REPORT INFORMATION
  Report Type: Spontaneous
  Country: JP (occurrence: JP)
  Receive Date: 20220409
  Receipt Date: 20220409
  Transmission Date: 20220721
  Serious: Yes (Hospitalization, Other)
  Sender: FDA-Public Use
  Company Number: JP-NOVITIUMPHARMA-2022JPNVP00045

PATIENT
  Age: 65 Year
  Sex: Female

DRUGS (4)
  1. PAROXETINE [Suspect]
     Active Substance: PAROXETINE
     Indication: Major depression
  2. LEVODOPA [Concomitant]
     Active Substance: LEVODOPA
     Indication: Parkinsonism
  3. CARBIDOPA [Concomitant]
     Active Substance: CARBIDOPA
     Indication: Parkinsonism
  4. TRAZODONE [Concomitant]
     Active Substance: TRAZODONE HYDROCHLORIDE
     Indication: Insomnia

REACTIONS (3)
  - Urosepsis [Recovered/Resolved]
  - Serotonin syndrome [Recovered/Resolved]
  - Labelled drug-food interaction issue [Unknown]
